FAERS Safety Report 6377498-5 (Version None)
Quarter: 2009Q3

REPORT INFORMATION
  Report Type: 
  Country: None (occurrence: None)
  Receive Date: 20090923
  Receipt Date: 20090923
  Transmission Date: 20100115
  Serious: Yes (Life-Threatening)
  Sender: FDA-Public Use
  Company Number: None

PATIENT
  Sex: Female
  Weight: 76.2 kg

DRUGS (2)
  1. OXYCODONE HCL [Suspect]
     Indication: PAIN
     Dosage: 5MG PO Q6HR PRN
     Route: 048
     Dates: start: 20090809, end: 20090812
  2. OXYCODONE HCL [Suspect]
     Dosage: 10MG PO Q4HRS PRN
     Route: 048

REACTIONS (2)
  - ASTERIXIS [None]
  - SOMNOLENCE [None]
